FAERS Safety Report 6094736-7 (Version None)
Quarter: 2009Q1

REPORT INFORMATION
  Report Type: 
  Country: None (occurrence: None)
  Receive Date: 20090225
  Receipt Date: 20090209
  Transmission Date: 20090719
  Serious: Yes (Death)
  Sender: FDA-Public Use
  Company Number: 2009S1002231

PATIENT
  Age: 15 Year
  Sex: Female

DRUGS (5)
  1. VINCRISTINE [Suspect]
     Indication: EWING'S SARCOMA
  2. DOXORUBICIN HCL [Suspect]
     Indication: EWING'S SARCOMA
     Dosage: 7.8 MG/M**2; NULL_1_WEEK
  3. CYCLOPHOSPHAMIDE [Suspect]
     Indication: EWING'S SARCOMA
     Dosage: 230 MG/M**2; NULL_1_WEEK
  4. ETOPOSIDE [Suspect]
     Indication: EWING'S SARCOMA
     Dosage: 83.3 MG/M**2;WEEKLY
  5. IFOSFAMIDE [Suspect]
     Indication: EWING'S SARCOMA
     Dosage: 1500 MG/M**2;NULL_1_WEEK

REACTIONS (3)
  - ACUTE MYELOID LEUKAEMIA [None]
  - MYELODYSPLASTIC SYNDROME [None]
  - REFRACTORY ANAEMIA [None]
